FAERS Safety Report 8493929-9 (Version None)
Quarter: 2012Q3

REPORT INFORMATION
  Report Type: 
  Country: None (occurrence: None)
  Receive Date: 20120709
  Receipt Date: 20120624
  Transmission Date: 20120928
  Serious: Yes (Life-Threatening, Hospitalization)
  Sender: FDA-Public Use
  Company Number: AU-BRISTOL-MYERS SQUIBB COMPANY-16709644

PATIENT
  Age: 24 Year
  Sex: Female

DRUGS (3)
  1. IDARUBICIN HCL [Suspect]
     Indication: ACUTE MYELOID LEUKAEMIA
  2. CYTARABINE [Suspect]
     Indication: ACUTE MYELOID LEUKAEMIA
  3. ETOPOSIDE [Suspect]
     Indication: ACUTE MYELOID LEUKAEMIA

REACTIONS (5)
  - BONE MARROW FAILURE [None]
  - NEUTROPENIC SEPSIS [None]
  - SYSTEMIC MYCOSIS [None]
  - BACTERAEMIA [None]
  - STEM CELL TRANSPLANT [None]
